FAERS Safety Report 4657368-0 (Version None)
Quarter: 2005Q2

REPORT INFORMATION
  Report Type: 
  Country: None (occurrence: None)
  Receive Date: 20050331
  Receipt Date: 20050129
  Transmission Date: 20051028
  Serious: No
  Sender: FDA-Public Use
  Company Number: US111085

PATIENT
  Age: 59 Year
  Sex: Female

DRUGS (9)
  1. NEULASTA [Suspect]
     Indication: NEUTROPENIA
     Dosage: 6 MG, 1 IN 1 DAYS, SC
     Route: 058
     Dates: start: 20050128
  2. MISOPROSTOL [Concomitant]
  3. ESOMEPRAZOLE MAGNESIUM [Concomitant]
  4. FLUOXETINE HCL [Concomitant]
  5. ZOLPIDEM TARTRATE [Concomitant]
  6. LORAZEPAM [Concomitant]
  7. CYCLOBENZAPRINE HCL [Concomitant]
  8. ASPIRIN W/ CODEINE [Concomitant]
  9. VITAMINS [Concomitant]

REACTIONS (2)
  - BACK PAIN [None]
  - HEADACHE [None]
